FAERS Safety Report 8057465-6 (Version None)
Quarter: 2012Q1

REPORT INFORMATION
  Report Type: 
  Country: None (occurrence: None)
  Receive Date: 20120119
  Receipt Date: 20120111
  Transmission Date: 20120608
  Serious: Yes (Other)
  Sender: FDA-Public Use
  Company Number: CA-ROCHE-GNE295874

PATIENT
  Sex: Male
  Weight: 100.11 kg

DRUGS (4)
  1. XOLAIR [Suspect]
     Route: 058
  2. XOLAIR [Suspect]
     Dosage: UNK
     Dates: start: 20070526
  3. XOLAIR [Suspect]
     Indication: ASTHMA
     Route: 058
     Dates: start: 20060308
  4. XOLAIR [Suspect]
     Route: 058
     Dates: start: 20091202

REACTIONS (13)
  - BLOOD PRESSURE DECREASED [None]
  - NASOPHARYNGITIS [None]
  - ASTHENIA [None]
  - RHINORRHOEA [None]
  - COUGH [None]
  - SINUS CONGESTION [None]
  - INCREASED UPPER AIRWAY SECRETION [None]
  - WEIGHT INCREASED [None]
  - OROPHARYNGEAL PAIN [None]
  - DRY THROAT [None]
  - ASTHMA [None]
  - RESPIRATORY TRACT CONGESTION [None]
  - LYMPHADENOPATHY [None]
